FAERS Safety Report 6219354-9 (Version None)
Quarter: 2009Q2

REPORT INFORMATION
  Report Type: 
  Country: None (occurrence: None)
  Receive Date: 20090605
  Receipt Date: 20090605
  Transmission Date: 20091009
  Serious: Yes (Hospitalization)
  Sender: FDA-Public Use
  Company Number: None

PATIENT
  Age: 19 Year
  Sex: Female
  Weight: 71.6683 kg

DRUGS (1)
  1. MONISTAT 1 COMBINATION PACK [Suspect]
     Indication: FUNGAL INFECTION
     Dosage: ONE OVULE ONE TIME VAG
     Route: 067
     Dates: start: 20090529, end: 20090529

REACTIONS (4)
  - ERYTHEMA [None]
  - GENITAL BURNING SENSATION [None]
  - GENITAL PAIN [None]
  - GENITAL SWELLING [None]
